FAERS Safety Report 12920811 (Version 1)
Quarter: 2016Q4

REPORT INFORMATION
  Report Type: Spontaneous
  Country: US (occurrence: US)
  Receive Date: 20161106
  Receipt Date: 20161106
  Transmission Date: 20170207
  Serious: No
  Sender: FDA-Public Use
  Company Number: None

PATIENT
  Age: 66 Year
  Sex: Male

DRUGS (4)
  1. CYCLOSPORINE CAP 100MG MD [Suspect]
     Active Substance: CYCLOSPORINE
     Indication: HEPATIC CIRRHOSIS
  2. CYCLOSPORINE CAP 100MG MD [Suspect]
     Active Substance: CYCLOSPORINE
     Indication: NAUSEA
  3. CYCLOSPORINE CAP 100MG MD [Suspect]
     Active Substance: CYCLOSPORINE
     Indication: TYPE 2 DIABETES MELLITUS
  4. CYCLOSPORINE CAP 100MG MD [Suspect]
     Active Substance: CYCLOSPORINE
     Indication: HEPATIC CYST

REACTIONS (1)
  - Tinnitus [None]

NARRATIVE: CASE EVENT DATE: 20161106
